FAERS Safety Report 9102786 (Version 2)
Quarter: 2013Q2

REPORT INFORMATION
  Report Type: Spontaneous
  Country: FR (occurrence: FR)
  Receive Date: 20130220
  Receipt Date: 20130422
  Transmission Date: 20140414
  Serious: Yes (Other)
  Sender: FDA-Public Use
  Company Number: FR-GILEAD-2013-0069783

PATIENT
  Age: 57 Year
  Sex: Male

DRUGS (23)
  1. VIREAD [Suspect]
     Indication: HIV INFECTION
     Dosage: UNK
     Dates: start: 20091028
  2. ISENTRESS [Interacting]
     Dosage: UNK
     Dates: start: 20091028
  3. INTELENCE [Concomitant]
     Dosage: 2 DF, BID
     Route: 048
     Dates: start: 20120620
  4. INTELENCE [Concomitant]
     Dosage: 4 DF, QD
     Route: 048
  5. INTELENCE [Concomitant]
     Dosage: 1 UNK, QD
  6. INTELENCE [Concomitant]
     Dosage: UNK
     Dates: start: 20090928
  7. GLUCOPHAGE [Concomitant]
     Dosage: 850 MG, BID
  8. GLUCOPHAGE [Concomitant]
     Dosage: QD1 G, UNK
  9. GLUCOPHAGE [Concomitant]
     Dosage: 500 MG, BID
     Dates: start: 20110519
  10. MODAMIDE [Concomitant]
     Indication: HYPERTENSION
     Dosage: 8 DF, QD
     Route: 048
  11. CRESTOR [Concomitant]
     Dosage: 10 MG, QD
     Dates: start: 20111013
  12. CRESTOR [Concomitant]
     Dosage: 10 UNK, UNK
     Dates: start: 20090527, end: 20091223
  13. CRESTOR [Concomitant]
     Dosage: 5 MG, UNK
     Dates: end: 20080110
  14. CRESTOR [Concomitant]
     Dosage: 10 MG, UNK
     Dates: start: 20080110, end: 20090304
  15. VASTAREL [Concomitant]
     Indication: EAR INJURY
  16. TENORDAL [Concomitant]
     Indication: EAR INJURY
  17. ANDRACTIM [Concomitant]
     Indication: GYNAECOMASTIA
     Dosage: 1 DF, Q1MONTH
  18. ACTOS [Concomitant]
     Dosage: UNK
     Dates: end: 20110519
  19. VITAMIN D /00107901/ [Concomitant]
  20. UVEDOSE [Concomitant]
  21. TITANOREINE                        /06568601/ [Concomitant]
     Indication: RECTAL HAEMORRHAGE
  22. ELISOR [Concomitant]
     Dosage: UNK
     Dates: start: 20090304
  23. HYPERIUM [Concomitant]
     Dosage: UNK
     Dates: end: 20080730

REACTIONS (9)
  - Suicidal ideation [Recovered/Resolved]
  - Type 2 diabetes mellitus [Unknown]
  - Drug interaction [Recovered/Resolved]
  - Nightmare [Recovered/Resolved]
  - Abnormal dreams [Recovered/Resolved]
  - Weight decreased [Unknown]
  - Hot flush [Unknown]
  - Osteopenia [Unknown]
  - Gynaecomastia [Unknown]
